FAERS Safety Report 5195769-5 (Version None)
Quarter: 2007Q1

REPORT INFORMATION
  Report Type: 
  Country: None (occurrence: None)
  Receive Date: 20070102
  Receipt Date: 20061220
  Transmission Date: 20070707
  Serious: Yes (Disabling)
  Sender: FDA-Public Use
  Company Number: FR-ROCHE-476291

PATIENT
  Age: 73 Year
  Sex: Male

DRUGS (9)
  1. ROCEPHIN [Suspect]
     Indication: BRONCHOPNEUMOPATHY
     Route: 030
     Dates: start: 20060821, end: 20060903
  2. BURINEX [Concomitant]
     Route: 048
  3. TRIATEC [Concomitant]
     Route: 048
  4. AMLOR [Concomitant]
  5. MONICOR [Concomitant]
  6. DIGOXIN [Concomitant]
  7. PREVISCAN [Concomitant]
  8. ALLOPURINOL SODIUM [Concomitant]
  9. METFORMIN HCL [Concomitant]

REACTIONS (5)
  - CARDIAC FAILURE [None]
  - CONDITION AGGRAVATED [None]
  - MICROCYTIC ANAEMIA [None]
  - PERITONEAL DIALYSIS [None]
  - RENAL FAILURE CHRONIC [None]
